FAERS Safety Report 20674558 (Version 2)
Quarter: 2022Q4

REPORT INFORMATION
  Report Type: Other
  Country: JP (occurrence: JP)
  Receive Date: 20220405
  Receipt Date: 20221021
  Transmission Date: 20230112
  Serious: Yes (Other)
  Sender: FDA-Public Use
  Company Number: JP-CHUGAI-2022011393

PATIENT
  Sex: Male
  Weight: 42.4 kg

DRUGS (4)
  1. TOCILIZUMAB [Suspect]
     Active Substance: TOCILIZUMAB
     Indication: Cytokine release syndrome
     Route: 065
  2. KYMRIAH [Suspect]
     Active Substance: TISAGENLECLEUCEL
     Indication: Acute lymphocytic leukaemia recurrent
     Dosage: FULL DOSE ADMINISTERED
     Route: 041
     Dates: start: 20210612, end: 20210612
  3. CYCLOPHOSPHAMIDE [Concomitant]
     Active Substance: CYCLOPHOSPHAMIDE
     Dosage: 1440 MILLIGRAM/SQ. METER
     Route: 065
     Dates: start: 20200720
  4. FLUDARABINE PHOSPHATE [Concomitant]
     Active Substance: FLUDARABINE PHOSPHATE
     Dosage: 172 MILLIGRAM/SQ. METER
     Route: 065
     Dates: start: 20200720

REACTIONS (2)
  - Cytopenia [Unknown]
  - Neuropathy peripheral [Recovering/Resolving]
